FAERS Safety Report 8808223 (Version 6)
Quarter: 2015Q2

REPORT INFORMATION
  Report Type: Report from Study
  Country: US (occurrence: US)
  Receive Date: 20120926
  Receipt Date: 20150410
  Transmission Date: 20150821
  Serious: Yes (Hospitalization, Other)
  Sender: FDA-Public Use
  Company Number: US-BIOGENIDEC-2012BI039071

PATIENT
  Age: 54 Year
  Sex: Female

DRUGS (5)
  1. AVONEX [Suspect]
     Active Substance: INTERFERON BETA-1A
     Indication: MULTIPLE SCLEROSIS
     Route: 030
     Dates: start: 20121031, end: 201211
  2. AVONEX [Suspect]
     Active Substance: INTERFERON BETA-1A
     Indication: MULTIPLE SCLEROSIS
     Route: 030
     Dates: start: 20120719, end: 20120915
  3. AVONEX [Suspect]
     Active Substance: INTERFERON BETA-1A
     Indication: MULTIPLE SCLEROSIS
     Route: 030
     Dates: start: 20140206
  4. AVONEX [Suspect]
     Active Substance: INTERFERON BETA-1A
     Indication: MULTIPLE SCLEROSIS
     Route: 030
     Dates: start: 20130211
  5. AVONEX [Suspect]
     Active Substance: INTERFERON BETA-1A
     Indication: MULTIPLE SCLEROSIS
     Route: 030
     Dates: start: 20140717

REACTIONS (31)
  - Erythema [Recovered/Resolved]
  - Peripheral swelling [Recovered/Resolved]
  - Tinnitus [Recovered/Resolved]
  - Suture rupture [Recovered/Resolved]
  - Hypersomnia [Recovered/Resolved]
  - Cystitis [Recovered/Resolved]
  - Hypoaesthesia [Not Recovered/Not Resolved]
  - Swelling face [Recovered/Resolved]
  - Procedural pain [Recovered/Resolved]
  - Malaise [Unknown]
  - Asthenia [Recovered/Resolved]
  - Fatigue [Not Recovered/Not Resolved]
  - Mobility decreased [Recovered/Resolved]
  - Scar [Not Recovered/Not Resolved]
  - Post procedural haemorrhage [Recovered/Resolved]
  - Bladder neck suspension [Recovered/Resolved]
  - Micturition urgency [Recovered/Resolved]
  - Muscle atrophy [Unknown]
  - Headache [Recovered/Resolved]
  - Hypertension [Recovered/Resolved]
  - Muscular weakness [Not Recovered/Not Resolved]
  - Uterine prolapse [Recovered/Resolved]
  - Injection site bruising [Not Recovered/Not Resolved]
  - Burning sensation [Not Recovered/Not Resolved]
  - Pain [Not Recovered/Not Resolved]
  - Musculoskeletal stiffness [Not Recovered/Not Resolved]
  - Urinary incontinence [Recovered/Resolved]
  - Seizure [Recovered/Resolved]
  - Immune system disorder [Unknown]
  - Injection site haemorrhage [Recovered/Resolved]
  - Influenza like illness [Not Recovered/Not Resolved]

NARRATIVE: CASE EVENT DATE: 2012
